FAERS Safety Report 6051494-X (Version None)
Quarter: 2009Q1

REPORT INFORMATION
  Report Type: 
  Country: None (occurrence: None)
  Receive Date: 20090126
  Receipt Date: 20090116
  Transmission Date: 20090719
  Serious: Yes (Hospitalization)
  Sender: FDA-Public Use
  Company Number: A0764916A

PATIENT
  Age: 57 Year
  Sex: Female
  Weight: 59.1 kg

DRUGS (4)
  1. AVANDIA [Suspect]
     Dosage: 4MG TWICE PER DAY
     Route: 048
     Dates: start: 20030503, end: 20041001
  2. GLUCOPHAGE [Concomitant]
     Dosage: 500MG TWICE PER DAY
     Dates: start: 19890101
  3. DIABETA [Concomitant]
     Dosage: 2.5MG TWICE PER DAY
     Dates: start: 19890101
  4. AMLODIPINE [Concomitant]

REACTIONS (1)
  - CEREBROVASCULAR ACCIDENT [None]
